FAERS Safety Report 20454137 (Version 1)
Quarter: 2022Q1

REPORT INFORMATION
  Report Type: Spontaneous
  Country: US (occurrence: None)
  Receive Date: 20220209
  Receipt Date: 20220209
  Transmission Date: 20220423
  Serious: No
  Sender: FDA-Public Use
  Company Number: None

PATIENT
  Age: 92 Year
  Sex: Male
  Weight: 69.7 kg

DRUGS (1)
  1. EVUSHELD [Suspect]
     Active Substance: CILGAVIMAB\TIXAGEVIMAB
     Dates: start: 20220129, end: 20220129

REACTIONS (6)
  - Asthenia [None]
  - Lethargy [None]
  - Dyspnoea [None]
  - Cardiac failure acute [None]
  - Pulmonary hypertension [None]
  - Condition aggravated [None]
